FAERS Safety Report 16213733 (Version 3)
Quarter: 2019Q3

REPORT INFORMATION
  Report Type: Spontaneous
  Country: US (occurrence: US)
  Receive Date: 20190418
  Receipt Date: 20190719
  Transmission Date: 20191004
  Serious: Yes (Other)
  Sender: FDA-Public Use
  Company Number: US-PFIZER INC-2019061039

PATIENT
  Age: 70 Year
  Sex: Male

DRUGS (25)
  1. NEXIUM 24HR [Suspect]
     Active Substance: ESOMEPRAZOLE MAGNESIUM
     Indication: GASTROOESOPHAGEAL REFLUX DISEASE
     Dosage: 20 MG, 1X/DAY
     Route: 048
  2. LANSOPRAZOLE. [Suspect]
     Active Substance: LANSOPRAZOLE
     Indication: GASTROOESOPHAGEAL REFLUX DISEASE
     Dosage: 30 MG, 1X/DAY
     Route: 048
     Dates: start: 20120626, end: 20120726
  3. ACIPHEX [Suspect]
     Active Substance: RABEPRAZOLE SODIUM
     Indication: GASTROOESOPHAGEAL REFLUX DISEASE
     Dosage: 20 MG, 1X/DAY
     Route: 048
     Dates: start: 20051104, end: 20091101
  4. CIPROFLOXACIN. [Concomitant]
     Active Substance: CIPROFLOXACIN
     Dosage: UNK
     Dates: start: 20101201, end: 20121203
  5. PRILOSEC [Suspect]
     Active Substance: OMEPRAZOLE MAGNESIUM
     Indication: GASTROOESOPHAGEAL REFLUX DISEASE
     Dosage: UNK, 1X/DAY
     Route: 048
     Dates: start: 20030701, end: 20050814
  6. DIOVAN [Concomitant]
     Active Substance: VALSARTAN
     Indication: FLUID RETENTION
     Dosage: UNK
     Route: 048
     Dates: start: 20040325, end: 20120731
  7. ALKA-SELTZER [Concomitant]
     Active Substance: ANHYDROUS CITRIC ACID\ASPIRIN\SODIUM BICARBONATE
     Dosage: 2 DF, AS NEEDED
     Dates: start: 2005
  8. ADVIL [Concomitant]
     Active Substance: IBUPROFEN
     Indication: PAIN
     Dosage: UNK
     Dates: start: 1974
  9. ASPIRIN. [Concomitant]
     Active Substance: ASPIRIN
     Indication: PAIN
     Dosage: UNK
     Dates: start: 2015
  10. PROTONIX [Suspect]
     Active Substance: PANTOPRAZOLE SODIUM
     Dosage: UNK
     Route: 048
  11. ATORVASTATIN [Concomitant]
     Active Substance: ATORVASTATIN
     Indication: BLOOD CHOLESTEROL ABNORMAL
     Dosage: UNK
     Dates: start: 20160831, end: 20161129
  12. NEXIUM [Suspect]
     Active Substance: ESOMEPRAZOLE MAGNESIUM
     Indication: GASTROOESOPHAGEAL REFLUX DISEASE
     Dosage: 40 MG, 1X/DAY
     Route: 048
     Dates: start: 20050926, end: 20051026
  13. OMEPRAZOLE. [Suspect]
     Active Substance: OMEPRAZOLE
     Indication: GASTROOESOPHAGEAL REFLUX DISEASE
     Dosage: 20 TO 40 MG, ONCE DAILY
     Route: 048
     Dates: start: 20030701, end: 20050814
  14. CIPROFLOXACIN. [Concomitant]
     Active Substance: CIPROFLOXACIN
     Indication: BACTERIAL INFECTION
     Dosage: UNK
     Dates: start: 20080815, end: 20090706
  15. PREVACID 24 HR [Suspect]
     Active Substance: LANSOPRAZOLE
     Dosage: UNK
     Route: 048
  16. PRILOSEC [Suspect]
     Active Substance: OMEPRAZOLE MAGNESIUM
     Dosage: UNK, 1X/DAY
     Route: 048
     Dates: start: 20100121, end: 20130104
  17. OMEPRAZOLE. [Suspect]
     Active Substance: OMEPRAZOLE
     Dosage: 20 TO 40 MG, ONCE DAILY
     Route: 048
     Dates: start: 20100121, end: 20130104
  18. PRAVASTATIN. [Concomitant]
     Active Substance: PRAVASTATIN
     Indication: BLOOD CHOLESTEROL ABNORMAL
     Dosage: UNK
     Dates: start: 20110421, end: 20110521
  19. NEXIUM [Suspect]
     Active Substance: ESOMEPRAZOLE MAGNESIUM
     Dosage: 40 MG, 1X/DAY
     Dates: start: 20120703, end: 20141004
  20. PREVACID [Suspect]
     Active Substance: LANSOPRAZOLE
     Dosage: UNK
     Route: 048
  21. PANTOPRAZOLE [Suspect]
     Active Substance: PANTOPRAZOLE
     Indication: GASTROOESOPHAGEAL REFLUX DISEASE
     Dosage: 40 MG, 1X/DAY
     Route: 048
     Dates: start: 20091112, end: 20100114
  22. SIMVASTATIN. [Concomitant]
     Active Substance: SIMVASTATIN
     Indication: BLOOD CHOLESTEROL ABNORMAL
     Dosage: UNK
     Dates: start: 20070503, end: 20091225
  23. SIMVASTATIN. [Concomitant]
     Active Substance: SIMVASTATIN
     Dosage: UNK
     Dates: start: 20110312, end: 20110412
  24. ZANTAC 150 (OTC) [Concomitant]
     Dosage: UNK
     Dates: start: 2015
  25. ALKA-SELTZER [Concomitant]
     Active Substance: ANHYDROUS CITRIC ACID\ASPIRIN\SODIUM BICARBONATE
     Indication: ANTACID THERAPY
     Dosage: 2 DF, AS NEEDED
     Dates: start: 2000, end: 2004

REACTIONS (2)
  - Chronic kidney disease [Not Recovered/Not Resolved]
  - Acute kidney injury [Not Recovered/Not Resolved]

NARRATIVE: CASE EVENT DATE: 201104
